FAERS Safety Report 10847293 (Version 2)
Quarter: 2015Q2

REPORT INFORMATION
  Report Type: Spontaneous
  Country: JP (occurrence: JP)
  Receive Date: 20150220
  Receipt Date: 20150420
  Transmission Date: 20150821
  Serious: Yes (Other)
  Sender: FDA-Public Use
  Company Number: PHJP2015JP001818

PATIENT
  Age: 72 Year
  Sex: Female

DRUGS (4)
  1. ADALAT [Concomitant]
     Active Substance: NIFEDIPINE
     Indication: VASCULAR OCCLUSION
     Dosage: (IN THE MORNING)
     Route: 048
  2. MEVALOTIN [Concomitant]
     Active Substance: PRAVASTATIN SODIUM
     Indication: PRODUCT USED FOR UNKNOWN INDICATION
     Route: 065
  3. ADALAT [Concomitant]
     Active Substance: NIFEDIPINE
     Indication: CARDIAC DISORDER
  4. DIOVAN [Suspect]
     Active Substance: VALSARTAN
     Indication: HYPERTENSION
     Dosage: 40 MG, QD (IN THE MORNING)
     Route: 048

REACTIONS (9)
  - Blood pressure increased [Unknown]
  - Hemiplegia [Unknown]
  - Brain natriuretic peptide increased [Unknown]
  - Stress [Unknown]
  - Blood creatine phosphokinase increased [Unknown]
  - Seizure [Unknown]
  - Retinal haemorrhage [Unknown]
  - Feeling cold [Unknown]
  - Multimorbidity [Unknown]

NARRATIVE: CASE EVENT DATE: 20150129
